FAERS Safety Report 17228080 (Version 1)
Quarter: 2019Q4

REPORT INFORMATION
  Report Type: Spontaneous
  Country: US (occurrence: US)
  Receive Date: 20191209
  Receipt Date: 20191209
  Transmission Date: 20200122
  Serious: Yes (Life-Threatening, Hospitalization)
  Sender: FDA-Public Use
  Company Number: None

PATIENT
  Age: 71 Year
  Sex: Male
  Weight: 108 kg

DRUGS (2)
  1. MELOXICAM (MELOXICAM 15MG TAB) [Suspect]
     Active Substance: MELOXICAM
     Indication: PAIN
     Route: 048
     Dates: start: 20190312, end: 20191201
  2. INDOMETHACIN (INDOMETHACIN 50MG CAP) [Suspect]
     Active Substance: INDOMETHACIN
     Indication: PAIN
     Route: 048
     Dates: start: 20151105, end: 20191201

REACTIONS (5)
  - Anaemia [None]
  - Rectal haemorrhage [None]
  - Dizziness [None]
  - Tachycardia [None]
  - Gastric haemorrhage [None]

NARRATIVE: CASE EVENT DATE: 20191201
